FAERS Safety Report 12990542 (Version 2)
Quarter: 2016Q4

REPORT INFORMATION
  Report Type: Spontaneous
  Country: DE (occurrence: DE)
  Receive Date: 20161201
  Receipt Date: 20161220
  Transmission Date: 20170207
  Serious: Yes (Disabling)
  Sender: FDA-Public Use
  Company Number: GXKR2016DE005437

PATIENT
  Age: 59 Year
  Sex: Female

DRUGS (3)
  1. FEMOSTON CONTI [Concomitant]
     Active Substance: DYDROGESTERONE\ESTRADIOL
     Indication: HORMONE REPLACEMENT THERAPY
     Dosage: UNK MG, UNK
     Route: 048
  2. CIPROHEXAL (CIPROFLOXACIN) [Suspect]
     Active Substance: CIPROFLOXACIN
     Indication: CYSTITIS
     Dosage: 100 MG, BID
     Route: 048
     Dates: start: 20160810, end: 20160812
  3. OMNI BIOTIC 6 [Concomitant]
     Indication: PROBIOTIC THERAPY
     Dosage: UNK
     Route: 048
     Dates: start: 20160810, end: 201609

REACTIONS (5)
  - Headache [Recovering/Resolving]
  - Muscle twitching [Recovering/Resolving]
  - Tendonitis [Recovering/Resolving]
  - Joint swelling [Recovering/Resolving]
  - Vision blurred [Recovering/Resolving]

NARRATIVE: CASE EVENT DATE: 20160826
